FAERS Safety Report 12508832 (Version 1)
Quarter: 2016Q2

REPORT INFORMATION
  Report Type: Spontaneous
  Country: AU (occurrence: AU)
  Receive Date: 20160629
  Receipt Date: 20160629
  Transmission Date: 20160815
  Serious: Yes (Life-Threatening)
  Sender: FDA-Public Use
  Company Number: AU-SEPTODONT-201603433

PATIENT
  Age: 52 Year
  Sex: Female

DRUGS (2)
  1. XYLOCAINE 5 % OINTMENT [Concomitant]
     Indication: LOCAL ANAESTHESIA
     Route: 004
     Dates: start: 20160606
  2. SEPTANEST 1/100.000 [Suspect]
     Active Substance: ARTICAINE HYDROCHLORIDE\EPINEPHRINE HYDROCHLORIDE
     Indication: LOCAL ANAESTHESIA
     Route: 004
     Dates: start: 20160606

REACTIONS (10)
  - Sensation of foreign body [None]
  - Drug hypersensitivity [None]
  - Product quality issue [None]
  - Choking [None]
  - Angioedema [None]
  - Procedural anxiety [Recovering/Resolving]
  - Dysphonia [Recovering/Resolving]
  - Throat tightness [Recovering/Resolving]
  - Obstructive airways disorder [Recovering/Resolving]
  - Secretion discharge [Recovering/Resolving]

NARRATIVE: CASE EVENT DATE: 20160606
